FAERS Safety Report 6262066-6 (Version None)
Quarter: 2009Q3

REPORT INFORMATION
  Report Type: 
  Country: None (occurrence: None)
  Receive Date: 20090707
  Receipt Date: 20090707
  Transmission Date: 20100115
  Serious: Yes (Life-Threatening)
  Sender: FDA-Public Use
  Company Number: None

PATIENT
  Age: 66 Year
  Sex: Female
  Weight: 52.1637 kg

DRUGS (1)
  1. LEVOTHYROXINE SODIUM [Suspect]
     Indication: DRUG DISPENSING ERROR
     Dates: start: 20090629, end: 20090702

REACTIONS (8)
  - ANXIETY [None]
  - DRUG DISPENSING ERROR [None]
  - FUMBLING [None]
  - GAIT DISTURBANCE [None]
  - HEART RATE INCREASED [None]
  - LETHARGY [None]
  - PRODUCT LABEL ISSUE [None]
  - WRONG DRUG ADMINISTERED [None]
